FAERS Safety Report 15779153 (Version 1)
Quarter: 2019Q1

REPORT INFORMATION
  Report Type: Spontaneous
  Country: CA (occurrence: CA)
  Receive Date: 20190101
  Receipt Date: 20190101
  Transmission Date: 20190417
  Serious: Yes (Other)
  Sender: FDA-Public Use
  Company Number: CA-ASTRAZENECA-2018SF71438

PATIENT
  Age: 75 Year
  Sex: Female

DRUGS (5)
  1. ASPIRIN. [Concomitant]
     Active Substance: ASPIRIN
     Dosage: LOADING DOSE OF 325 MG
  2. TICAGRELOR. [Suspect]
     Active Substance: TICAGRELOR
     Dosage: LOADING DOSE OF 180 MG
     Route: 048
  3. METOPROLOL. [Concomitant]
     Active Substance: METOPROLOL
  4. TICAGRELOR. [Suspect]
     Active Substance: TICAGRELOR
     Route: 048
  5. METOPROLOL. [Concomitant]
     Active Substance: METOPROLOL

REACTIONS (4)
  - Atrioventricular block [Recovered/Resolved]
  - Sinus bradycardia [Recovering/Resolving]
  - Cheyne-Stokes respiration [Unknown]
  - Bradyarrhythmia [Recovered/Resolved]
